FAERS Safety Report 9594100 (Version 1)
Quarter: 2013Q3

REPORT INFORMATION
  Report Type: Spontaneous
  Country: US (occurrence: None)
  Receive Date: 20130930
  Receipt Date: 20130930
  Transmission Date: 20140515
  Serious: Yes (Other)
  Sender: FDA-Public Use
  Company Number: 1000047695

PATIENT
  Age: 78 Year
  Sex: Male

DRUGS (4)
  1. LINZESS [Suspect]
     Indication: CONSTIPATION
     Route: 048
     Dates: start: 20130802
  2. ATENOLOL(ATENOLOL)(ATENOLOL) [Concomitant]
  3. BENAZEPRIL(BENAZEPRIL)(BENAZEPRIL) [Concomitant]
  4. BETHANECHOL(BETHANECHOL)(BETHANECHOL) [Concomitant]

REACTIONS (1)
  - Diarrhoea [None]
